FAERS Safety Report 5542557-3 (Version None)
Quarter: 2007Q4

REPORT INFORMATION
  Report Type: 
  Country: None (occurrence: None)
  Receive Date: 20071123
  Receipt Date: 20070918
  Transmission Date: 20080405
  Serious: Yes (Other)
  Sender: FDA-Public Use
  Company Number: US-JNJFOC-20070706080

PATIENT
  Age: 41 Year
  Sex: Female
  Weight: 61.6892 kg

DRUGS (2)
  1. LEVAQUIN [Suspect]
     Indication: PHARYNGITIS
     Dosage: 750 MG, IN 1 DAY
     Dates: start: 20070628, end: 20070703
  2. LEVAQUIN [Suspect]
     Indication: SINUSITIS
     Dosage: 750 MG, IN 1 DAY
     Dates: start: 20070628, end: 20070703

REACTIONS (2)
  - ARTHRALGIA [None]
  - MYALGIA [None]
